FAERS Safety Report 17846188 (Version 3)
Quarter: 2021Q3

REPORT INFORMATION
  Report Type: Spontaneous
  Country: CA (occurrence: CA)
  Receive Date: 20200601
  Receipt Date: 20210810
  Transmission Date: 20211014
  Serious: Yes (Life-Threatening, Hospitalization)
  Sender: FDA-Public Use
  Company Number: CA-ROCHE-2607272

PATIENT
  Age: 71 Year
  Sex: Female

DRUGS (26)
  1. PROCYTOX [Suspect]
     Active Substance: CYCLOPHOSPHAMIDE
     Indication: NON-HODGKIN^S LYMPHOMA
     Dosage: 2000MG/VIAL
     Route: 042
  2. VINCRISTINE SULFATE. [Suspect]
     Active Substance: VINCRISTINE SULFATE
     Route: 042
  3. GABAPENTIN. [Concomitant]
     Active Substance: GABAPENTIN
  4. PREDNISONE. [Suspect]
     Active Substance: PREDNISONE
     Indication: NON-HODGKIN^S LYMPHOMA
     Route: 042
  5. DILANTIN [Concomitant]
     Active Substance: PHENYTOIN
  6. RITUXAN [Suspect]
     Active Substance: RITUXIMAB
     Dosage: SOLUTION INTRAVENOUS
     Route: 042
  7. RITUXAN [Suspect]
     Active Substance: RITUXIMAB
     Dosage: SOLUTION FOR INFUSION
     Route: 042
  8. PROCYTOX [Suspect]
     Active Substance: CYCLOPHOSPHAMIDE
     Dosage: 2000MG/VIAL
     Route: 042
  9. VENTOLIN [Concomitant]
     Active Substance: ALBUTEROL SULFATE
  10. VINCRISTINE SULFATE. [Suspect]
     Active Substance: VINCRISTINE SULFATE
     Indication: NON-HODGKIN^S LYMPHOMA
     Route: 042
  11. LORAZEPAM. [Concomitant]
     Active Substance: LORAZEPAM
  12. CIPRALEX [Concomitant]
     Active Substance: ESCITALOPRAM OXALATE
     Route: 065
  13. VENTOLIN [Concomitant]
     Active Substance: ALBUTEROL SULFATE
     Route: 065
  14. CYCLOPHOSPHAMIDE. [Suspect]
     Active Substance: CYCLOPHOSPHAMIDE
     Indication: NON-HODGKIN^S LYMPHOMA
     Route: 042
  15. DOXORUBICIN [Suspect]
     Active Substance: DOXORUBICIN
     Indication: NON-HODGKIN^S LYMPHOMA
     Route: 042
  16. DOXORUBICIN [Suspect]
     Active Substance: DOXORUBICIN
     Route: 042
  17. DILANTIN [Concomitant]
     Active Substance: PHENYTOIN
     Route: 065
  18. OLANZAPINE. [Suspect]
     Active Substance: OLANZAPINE
     Indication: PRODUCT USED FOR UNKNOWN INDICATION
     Route: 065
  19. GLYCOPYRRONIUM BROMIDE [Concomitant]
     Active Substance: GLYCOPYRROLATE
  20. DOXORUBICIN HYDROCHLORIDE. [Suspect]
     Active Substance: DOXORUBICIN HYDROCHLORIDE
     Indication: NON-HODGKIN^S LYMPHOMA
     Route: 042
  21. PREDNISONE. [Suspect]
     Active Substance: PREDNISONE
     Route: 042
  22. PROCYTOX [Suspect]
     Active Substance: CYCLOPHOSPHAMIDE
     Route: 042
  23. BISOPROLOL [Concomitant]
     Active Substance: BISOPROLOL
  24. INDACATEROL MALEATE [Concomitant]
     Active Substance: INDACATEROL MALEATE
  25. RITUXAN [Suspect]
     Active Substance: RITUXIMAB
     Indication: NON-HODGKIN^S LYMPHOMA
     Route: 042
  26. ASA [Concomitant]
     Active Substance: ASPIRIN

REACTIONS (13)
  - Coma [Unknown]
  - Respiratory failure [Unknown]
  - Pneumonia [Unknown]
  - Depression [Unknown]
  - Gastrointestinal disorder [Unknown]
  - Second primary malignancy [Unknown]
  - Septic shock [Unknown]
  - Dizziness [Unknown]
  - Lung neoplasm malignant [Unknown]
  - Seizure [Unknown]
  - Chronic obstructive pulmonary disease [Unknown]
  - Paranoia [Unknown]
  - Brain injury [Unknown]
